FAERS Safety Report 4787289-4 (Version None)
Quarter: 2005Q3

REPORT INFORMATION
  Report Type: 
  Country: None (occurrence: None)
  Receive Date: 20050926
  Receipt Date: 20050701
  Transmission Date: 20060218
  Serious: No
  Sender: FDA-Public Use
  Company Number: 214993

PATIENT
  Age: 51 Year
  Sex: Female
  Weight: 142.4 kg

DRUGS (2)
  1. AVASTIN [Suspect]
     Indication: BREAST CANCER METASTATIC
     Dosage: 700 MG, QW2, INTRAVENOUS
     Route: 042
     Dates: end: 20050606
  2. ABRAXANE (PACLITAXEL) [Concomitant]

REACTIONS (1)
  - RASH [None]
